FAERS Safety Report 23089217 (Version 1)
Quarter: 2023Q4

REPORT INFORMATION
  Report Type: Spontaneous
  Country: GB (occurrence: GB)
  Receive Date: 20231020
  Receipt Date: 20231020
  Transmission Date: 20240110
  Serious: Yes (Other)
  Sender: FDA-Public Use
  Company Number: None

PATIENT
  Age: 53 Year
  Sex: Female
  Weight: 57 kg

DRUGS (5)
  1. TRAMADOL [Suspect]
     Active Substance: TRAMADOL\TRAMADOL HYDROCHLORIDE
     Indication: Ill-defined disorder
     Dosage: UNK
     Route: 065
     Dates: start: 20231013
  2. GABAPENTIN [Concomitant]
     Active Substance: GABAPENTIN
     Indication: Ill-defined disorder
     Dosage: ONE OD FOR 3/7, ONE BD FOR 3/7, THEN TDS
     Route: 065
     Dates: start: 20231013
  3. LANSOPRAZOLE [Concomitant]
     Active Substance: LANSOPRAZOLE
     Indication: Ill-defined disorder
     Dosage: 1 DOSAGE FORM, QD (WHILST ON NAPROXEN)
     Route: 065
     Dates: start: 20230301
  4. NAPROXEN [Concomitant]
     Active Substance: NAPROXEN
     Indication: Ill-defined disorder
     Dosage: 1 DOSAGE FORM (ONE TABLET, TWICE DAILY - AS NEEDED)
     Route: 065
     Dates: start: 20230301
  5. NAPROXEN [Concomitant]
     Active Substance: NAPROXEN
     Indication: Pain

REACTIONS (1)
  - Illness [Unknown]

NARRATIVE: CASE EVENT DATE: 20231013
